FAERS Safety Report 13219140 (Version 1)
Quarter: 2017Q1

REPORT INFORMATION
  Report Type: Other
  Country: US (occurrence: US)
  Receive Date: 20170210
  Receipt Date: 20170210
  Transmission Date: 20170428
  Serious: No
  Sender: FDA-Public Use
  Company Number: US-ACORDA-ACO_127126_2016

PATIENT
  Age: 62 Year
  Sex: Female

DRUGS (1)
  1. AMPYRA [Suspect]
     Active Substance: DALFAMPRIDINE
     Indication: PRODUCT USED FOR UNKNOWN INDICATION
     Dosage: UNK
     Route: 065

REACTIONS (9)
  - Asthma [Unknown]
  - Hypothyroidism [Unknown]
  - Essential hypertension [Unknown]
  - Paraesthesia [Unknown]
  - Rhinitis allergic [Unknown]
  - Osteopenia [Unknown]
  - Fatigue [Unknown]
  - Obesity [Unknown]
  - Gastrooesophageal reflux disease [Unknown]
